FAERS Safety Report 14783502 (Version 3)
Quarter: 2019Q2

REPORT INFORMATION
  Report Type: Spontaneous
  Country: US (occurrence: US)
  Receive Date: 20180420
  Receipt Date: 20190515
  Transmission Date: 20190711
  Serious: Yes (Other)
  Sender: FDA-Public Use
  Company Number: US-ASTRAZENECA-2018SE49617

PATIENT
  Age: 72 Year
  Sex: Female
  Weight: 123.4 kg

DRUGS (26)
  1. DEXILANT [Suspect]
     Active Substance: DEXLANSOPRAZOLE
     Route: 065
     Dates: start: 198909, end: 201412
  2. PREVACID [Suspect]
     Active Substance: LANSOPRAZOLE
     Route: 065
     Dates: start: 198909, end: 201412
  3. LIPITOR [Concomitant]
     Active Substance: ATORVASTATIN CALCIUM
  4. NEXIUM [Suspect]
     Active Substance: ESOMEPRAZOLE MAGNESIUM
     Route: 048
     Dates: start: 198909, end: 201412
  5. NEXIUM 24HR [Suspect]
     Active Substance: ESOMEPRAZOLE MAGNESIUM
     Route: 048
     Dates: start: 198909, end: 201412
  6. PRILOSEC [Suspect]
     Active Substance: OMEPRAZOLE MAGNESIUM
     Route: 048
     Dates: start: 198909, end: 201412
  7. PRILOSEC OTC [Suspect]
     Active Substance: OMEPRAZOLE MAGNESIUM
     Indication: GASTROOESOPHAGEAL REFLUX DISEASE
     Route: 048
     Dates: start: 2003, end: 2006
  8. PROTONIX [Suspect]
     Active Substance: PANTOPRAZOLE SODIUM
     Dosage: GENERIC
     Route: 065
     Dates: start: 20110321, end: 20130325
  9. PROTONIX [Suspect]
     Active Substance: PANTOPRAZOLE SODIUM
     Route: 065
     Dates: start: 20130326, end: 20160321
  10. FUROSEMIDE. [Concomitant]
     Active Substance: FUROSEMIDE
  11. PROTONIX [Suspect]
     Active Substance: PANTOPRAZOLE SODIUM
     Route: 065
     Dates: start: 198909, end: 201412
  12. LOSARTAN. [Concomitant]
     Active Substance: LOSARTAN
  13. LASIX [Concomitant]
     Active Substance: FUROSEMIDE
  14. APO-HYDRO [Concomitant]
     Active Substance: HYDROCHLOROTHIAZIDE
  15. ATORVASTATIN [Concomitant]
     Active Substance: ATORVASTATIN
  16. PRILOSEC OTC [Suspect]
     Active Substance: OMEPRAZOLE MAGNESIUM
     Indication: GASTROOESOPHAGEAL REFLUX DISEASE
     Route: 048
     Dates: start: 198909, end: 201412
  17. ZYLOPRIM [Concomitant]
     Active Substance: ALLOPURINOL
  18. PEPCID [Concomitant]
     Active Substance: FAMOTIDINE
  19. PREVACID 24 HR [Suspect]
     Active Substance: LANSOPRAZOLE
     Indication: GASTROOESOPHAGEAL REFLUX DISEASE
     Route: 065
     Dates: start: 198909, end: 201412
  20. HYDROCHLOROTHIAZIDE. [Concomitant]
     Active Substance: HYDROCHLOROTHIAZIDE
  21. ALLOPURINOL. [Concomitant]
     Active Substance: ALLOPURINOL
  22. PROTONIX [Suspect]
     Active Substance: PANTOPRAZOLE SODIUM
     Route: 065
     Dates: start: 20080422, end: 20110320
  23. SULFASALAZINE. [Concomitant]
     Active Substance: SULFASALAZINE
  24. PREVACID 24 HR [Suspect]
     Active Substance: LANSOPRAZOLE
     Indication: GASTROOESOPHAGEAL REFLUX DISEASE
     Route: 065
     Dates: start: 2009, end: 2011
  25. COZAAR [Concomitant]
     Active Substance: LOSARTAN POTASSIUM
  26. ATOR [Concomitant]
     Active Substance: ATORVASTATIN CALCIUM

REACTIONS (2)
  - Chronic kidney disease [Not Recovered/Not Resolved]
  - Renal injury [Unknown]

NARRATIVE: CASE EVENT DATE: 2014
